FAERS Safety Report 7627237-2 (Version None)
Quarter: 2011Q3

REPORT INFORMATION
  Report Type: 
  Country: None (occurrence: None)
  Receive Date: 20110715
  Receipt Date: 20110701
  Transmission Date: 20111222
  Serious: Yes (Other)
  Sender: FDA-Public Use
  Company Number: EU-2011-10102

PATIENT
  Sex: Female

DRUGS (2)
  1. CORTONE (CORTISONE ACETATE) [Concomitant]
  2. SAMSCA [Suspect]
     Dosage: 15 MG MILLIGRAM(S), UNKNOWN, ORAL
     Route: 048
     Dates: start: 20110613, end: 20110613

REACTIONS (6)
  - COMA [None]
  - CONDITION AGGRAVATED [None]
  - HYPONATRAEMIA [None]
  - CONFUSIONAL STATE [None]
  - EPILEPSY [None]
  - DRUG INEFFECTIVE [None]
